FAERS Safety Report 15721971 (Version 1)
Quarter: 2018Q4

REPORT INFORMATION
  Report Type: Spontaneous
  Country: AU (occurrence: AU)
  Receive Date: 20181214
  Receipt Date: 20181214
  Transmission Date: 20190205
  Serious: Yes (Other)
  Sender: FDA-Public Use
  Company Number: AU-AMGEN-AUSSP2018175633

PATIENT
  Age: 8 Month
  Sex: Female

DRUGS (2)
  1. FLAG-IDA [Concomitant]
     Active Substance: CYTARABINE\FLUDARABINE\GRANULOCYTE COLONY-STIMULATING FACTOR NOS\IDARUBICIN
     Indication: ACUTE LYMPHOCYTIC LEUKAEMIA RECURRENT
     Dosage: UNK
     Dates: start: 201811
  2. BLINCYTO [Suspect]
     Active Substance: BLINATUMOMAB
     Indication: B PRECURSOR TYPE ACUTE LEUKAEMIA
     Dosage: UNK
     Route: 065
     Dates: start: 201808

REACTIONS (11)
  - Febrile neutropenia [Recovered/Resolved]
  - Blood albumin decreased [Unknown]
  - Blood lactate dehydrogenase decreased [Unknown]
  - Anaemia [Unknown]
  - Blood creatinine decreased [Unknown]
  - Gamma-glutamyltransferase increased [Unknown]
  - Leukopenia [Unknown]
  - Anion gap increased [Unknown]
  - Protein total decreased [Unknown]
  - Acute lymphocytic leukaemia [Unknown]
  - Basophil count increased [Unknown]

NARRATIVE: CASE EVENT DATE: 201811
